FAERS Safety Report 6404642-3 (Version None)
Quarter: 2009Q4

REPORT INFORMATION
  Report Type: 
  Country: None (occurrence: None)
  Receive Date: 20091016
  Receipt Date: 20091005
  Transmission Date: 20100525
  Serious: Yes (Other)
  Sender: FDA-Public Use
  Company Number: US-ELI_LILLY_AND_COMPANY-US200910003342

PATIENT

DRUGS (3)
  1. ZYPREXA [Suspect]
     Indication: ANXIETY
     Dosage: 2.5 MG, DAILY (1/D)
     Route: 064
     Dates: start: 20090101, end: 20090710
  2. ANTIBIOTICS [Concomitant]
     Indication: URINARY TRACT INFECTION
     Route: 064
  3. PHENERGAN [Concomitant]
     Indication: VOMITING
     Dates: start: 20090715

REACTIONS (2)
  - DRUG EXPOSURE DURING PREGNANCY [None]
  - SMALL FOR DATES BABY [None]
